FAERS Safety Report 8359496-5 (Version None)
Quarter: 2012Q2

REPORT INFORMATION
  Report Type: 
  Country: None (occurrence: None)
  Receive Date: 20120515
  Receipt Date: 20120503
  Transmission Date: 20120825
  Serious: No
  Sender: FDA-Public Use
  Company Number: CH-US-EMD SERONO, INC.-230008J10CHE

PATIENT
  Sex: Male
  Weight: 3 kg

DRUGS (2)
  1. REBIF [Suspect]
     Indication: MULTIPLE SCLEROSIS
     Route: 064
  2. REBIF [Suspect]
     Route: 063
     Dates: start: 20070101

REACTIONS (4)
  - FOETAL EXPOSURE DURING PREGNANCY [None]
  - MATERNAL DRUGS AFFECTING FOETUS [None]
  - NEURODERMATITIS [None]
  - EXPOSURE DURING BREAST FEEDING [None]
